FAERS Safety Report 4804682-1 (Version None)
Quarter: 2005Q4

REPORT INFORMATION
  Report Type: 
  Country: None (occurrence: None)
  Receive Date: 20051014
  Receipt Date: 20051005
  Transmission Date: 20060501
  Serious: Yes (Other)
  Sender: FDA-Public Use
  Company Number: 200513922BCC

PATIENT
  Sex: Male

DRUGS (2)
  1. ALEVE [Suspect]
     Dosage: ORAL
     Route: 048
  2. ZYPREXA [Suspect]
     Dosage: 30 MG, ONCE, ORAL
     Route: 048

REACTIONS (5)
  - ACCIDENTAL EXPOSURE [None]
  - DRUG DISPENSING ERROR [None]
  - LOSS OF CONSCIOUSNESS [None]
  - MOOD SWINGS [None]
  - PHARMACEUTICAL PRODUCT COMPLAINT [None]
